FAERS Safety Report 12719854 (Version 1)
Quarter: 2016Q3

REPORT INFORMATION
  Report Type: Spontaneous
  Country: US (occurrence: US)
  Receive Date: 20160907
  Receipt Date: 20160907
  Transmission Date: 20161109
  Serious: Yes (Other)
  Sender: FDA-Public Use
  Company Number: US-JNJFOC-20150809332

PATIENT
  Sex: Female
  Weight: 53.52 kg

DRUGS (4)
  1. LEVAQUIN [Suspect]
     Active Substance: LEVOFLOXACIN
     Indication: BRONCHITIS
     Route: 048
     Dates: start: 20080314
  2. LEVAQUIN [Suspect]
     Active Substance: LEVOFLOXACIN
     Indication: PNEUMONIA VIRAL
     Route: 048
     Dates: start: 200803, end: 2008
  3. LEVAQUIN [Suspect]
     Active Substance: LEVOFLOXACIN
     Indication: PNEUMONIA VIRAL
     Route: 048
     Dates: start: 20080314
  4. LEVAQUIN [Suspect]
     Active Substance: LEVOFLOXACIN
     Indication: BRONCHITIS
     Route: 048
     Dates: start: 200803, end: 2008

REACTIONS (7)
  - Neuropathy peripheral [Not Recovered/Not Resolved]
  - Rash generalised [Unknown]
  - Urticaria [Unknown]
  - Drug hypersensitivity [Unknown]
  - Nausea [Unknown]
  - Anxiety [Unknown]
  - Dysphagia [Unknown]

NARRATIVE: CASE EVENT DATE: 2008
